FAERS Safety Report 23148675 (Version 2)
Quarter: 2024Q1

REPORT INFORMATION
  Report Type: Spontaneous
  Country: ES (occurrence: ES)
  Receive Date: 20231106
  Receipt Date: 20240105
  Transmission Date: 20240410
  Serious: No
  Sender: FDA-Public Use
  Company Number: ES-BIOVITRUM-2023-ES-014116

PATIENT
  Age: 92 Year
  Sex: Male

DRUGS (9)
  1. DOPTELET [Suspect]
     Active Substance: AVATROMBOPAG MALEATE
     Indication: Immune thrombocytopenia
     Dates: start: 20230710, end: 20230821
  2. PREDNISONE [Concomitant]
     Active Substance: PREDNISONE
     Indication: Product used for unknown indication
     Dosage: PER DAY
  3. CARVEDILOL [Concomitant]
     Active Substance: CARVEDILOL
     Indication: Product used for unknown indication
     Dosage: 1/2 TABLET/DAY
  4. ENTRESTO [Concomitant]
     Active Substance: SACUBITRIL\VALSARTAN
     Indication: Product used for unknown indication
     Dosage: (SACUBITRIL / VALSARTAN) 49/51 MG EVERY 12 HOURS
  5. CITALOPRAM HYDROBROMIDE [Concomitant]
     Active Substance: CITALOPRAM HYDROBROMIDE
     Indication: Product used for unknown indication
     Dosage: 1 TABLET PER DAY
  6. GABAPENTIN HYDROCHLORIDE [Concomitant]
     Indication: Product used for unknown indication
     Dosage: EVERY 12 HOURS
  7. CALCIUM CARBONATE\CHOLECALCIFEROL [Concomitant]
     Active Substance: CALCIUM CARBONATE\CHOLECALCIFEROL
     Indication: Product used for unknown indication
     Dosage: CHEPLAPHARM ARZNEIMITTEL GMBH, MASTICAL D (CALCIUM CARBONATE/CHOLECALCIFEROL)?1 TABLET AT DINNER
  8. CALCIFEDIOL [Concomitant]
     Active Substance: CALCIFEDIOL
     Indication: Product used for unknown indication
     Dosage: FAES FARMA S.A, HYDROFEROL (CALCIFEDIOL)?1 VAIL PER DAY
  9. MAGNESIOBOI [Concomitant]
     Indication: Product used for unknown indication
     Dosage: LABORATORIOS VICKS S.L, MAGNESIOBOI (MAGNESIUM LACTATE)?2 TABLETS/DAY

REACTIONS (2)
  - Hypersensitivity [Recovered/Resolved]
  - Condition aggravated [Recovered/Resolved]

NARRATIVE: CASE EVENT DATE: 20230811
